FAERS Safety Report 9621378 (Version 1)
Quarter: 2013Q4

REPORT INFORMATION
  Report Type: Spontaneous
  Country: US (occurrence: US)
  Receive Date: 20131015
  Receipt Date: 20131015
  Transmission Date: 20140711
  Serious: No
  Sender: FDA-Public Use
  Company Number: US-PFIZER INC-2013292116

PATIENT
  Age: 48 Year
  Sex: Female

DRUGS (5)
  1. XELJANZ [Suspect]
     Dosage: 5 MG, 2X/DAY
     Route: 048
  2. OMEPRAZOLE [Concomitant]
     Dosage: 40 MG, UNK,DELAYED RELEASE CAPSULE
     Route: 048
  3. METHOTREXATE SODIUM [Concomitant]
     Dosage: 2.5 MG, UNK
     Route: 048
  4. REMICADE [Concomitant]
     Dosage: 100 MG, UNK
     Route: 042
  5. PREDNISONE [Concomitant]
     Dosage: 5 MG, UNK
     Route: 048

REACTIONS (4)
  - Pain [Unknown]
  - Musculoskeletal stiffness [Unknown]
  - Joint swelling [Unknown]
  - Activities of daily living impaired [Unknown]
